FAERS Safety Report 4614697-4 (Version None)
Quarter: 2005Q1

REPORT INFORMATION
  Report Type: 
  Country: None (occurrence: None)
  Receive Date: 20050322
  Receipt Date: 20050310
  Transmission Date: 20050727
  Serious: Yes (Hospitalization)
  Sender: FDA-Public Use
  Company Number: JP-JNJFOC-20050302613

PATIENT
  Sex: Male
  Weight: 63.3 kg

DRUGS (3)
  1. REMICADE [Suspect]
     Indication: CROHN'S DISEASE
     Route: 042
  2. RHEUMATREX [Concomitant]
  3. PENTASA [Concomitant]
     Indication: CROHN'S DISEASE
     Route: 049

REACTIONS (2)
  - ABDOMINAL PAIN [None]
  - ASCITES [None]
